FAERS Safety Report 6412161-3 (Version None)
Quarter: 2009Q4

REPORT INFORMATION
  Report Type: 
  Country: None (occurrence: None)
  Receive Date: 20091023
  Receipt Date: 20091019
  Transmission Date: 20100525
  Serious: Yes (Death, Hospitalization, Congenital Anomaly)
  Sender: FDA-Public Use
  Company Number: A0746202A

PATIENT
  Sex: Male
  Weight: 3 kg

DRUGS (11)
  1. PAXIL [Suspect]
     Indication: DEPRESSION
     Dosage: 40MG PER DAY
  2. PAROXETINE HCL [Suspect]
     Indication: ANXIETY
     Dosage: 40MG PER DAY
     Dates: start: 19970101, end: 20070701
  3. TRILEPTAL [Concomitant]
     Indication: EPILEPSY
     Dosage: 600MG PER DAY
     Dates: start: 20040101, end: 20070101
  4. LIPITOR [Concomitant]
     Indication: BLOOD CHOLESTEROL INCREASED
     Dates: start: 19890101, end: 20070101
  5. LANTUS [Concomitant]
     Dates: start: 20040101, end: 20050101
  6. VITAMIN TAB [Concomitant]
  7. FOLIC ACID [Concomitant]
     Dates: start: 20040101, end: 20050101
  8. METFORMIN HCL [Concomitant]
     Indication: DIABETES MELLITUS
     Dates: start: 20040101
  9. FLEXERIL [Concomitant]
  10. LORTAB [Concomitant]
  11. INDOCIN [Concomitant]

REACTIONS (37)
  - ABDOMINAL TRANSPOSITION [None]
  - ANOMALOUS PULMONARY VENOUS CONNECTION [None]
  - ASPLENIA [None]
  - ASTHENIA [None]
  - ASTHMA [None]
  - ATELECTASIS [None]
  - ATRIAL SEPTAL DEFECT [None]
  - ATRIAL TACHYCARDIA [None]
  - BACTERIAL SEPSIS [None]
  - BRONCHOMALACIA [None]
  - CAESAREAN SECTION [None]
  - CARDIOMEGALY [None]
  - CONGENITAL AORTIC VALVE INCOMPETENCE [None]
  - CONGENITAL OESOPHAGEAL ANOMALY [None]
  - CONGENITAL TRICUSPID VALVE INCOMPETENCE [None]
  - COUGH [None]
  - CRYING [None]
  - CYANOSIS [None]
  - DISCOMFORT [None]
  - DRUG EXPOSURE DURING PREGNANCY [None]
  - DUODENAL ATRESIA [None]
  - GASTROOESOPHAGEAL REFLUX DISEASE [None]
  - HEART DISEASE CONGENITAL [None]
  - HYPOPLASTIC LEFT HEART SYNDROME [None]
  - INTESTINAL MALROTATION [None]
  - LEFT VENTRICLE OUTFLOW TRACT OBSTRUCTION [None]
  - MACROCEPHALY [None]
  - PATENT DUCTUS ARTERIOSUS [None]
  - PLAGIOCEPHALY [None]
  - POSTOPERATIVE RENAL FAILURE [None]
  - PULMONARY ARTERIOVENOUS FISTULA [None]
  - RENAL FAILURE [None]
  - RIGHT AORTIC ARCH [None]
  - SLEEP APNOEA SYNDROME [None]
  - VENTRICULAR SEPTAL DEFECT [None]
  - VOCAL CORD PARALYSIS [None]
  - WHEEZING [None]
